FAERS Safety Report 4304825-2 (Version None)
Quarter: 2004Q1

REPORT INFORMATION
  Report Type: 
  Country: None (occurrence: None)
  Receive Date: 20040225
  Receipt Date: 20040225
  Transmission Date: 20041129
  Serious: Yes (Hospitalization)
  Sender: FDA-Public Use
  Company Number: None

PATIENT
  Sex: Female
  Weight: 83.0083 kg

DRUGS (2)
  1. COUMADIN [Suspect]
     Indication: CARDIAC FAILURE CONGESTIVE
     Dosage: QD (PO)
     Route: 048
  2. COUMADIN [Suspect]
     Indication: CARDIOMYOPATHY
     Dosage: QD (PO)
     Route: 048

REACTIONS (2)
  - DRUG INTOLERANCE [None]
  - PHARMACEUTICAL PRODUCT COMPLAINT [None]
